FAERS Safety Report 4340144-6 (Version None)
Quarter: 2004Q2

REPORT INFORMATION
  Report Type: 
  Country: None (occurrence: None)
  Receive Date: 20040416
  Receipt Date: 20040416
  Transmission Date: 20050107
  Serious: Yes (Other)
  Sender: FDA-Public Use
  Company Number: None

PATIENT
  Age: 28 Year
  Sex: Male
  Weight: 77.1115 kg

DRUGS (3)
  1. PAXIL CR [Suspect]
     Indication: DEPRESSION
     Dosage: 25 MG TWICE DAIL
     Dates: start: 19960404, end: 20040309
  2. PAXIL CR [Suspect]
     Indication: PANIC ATTACK
     Dosage: 25 MG TWICE DAIL
     Dates: start: 19960404, end: 20040309
  3. PAXIL CR [Suspect]
     Indication: SOCIAL PHOBIA
     Dosage: 25 MG TWICE DAIL
     Dates: start: 19960404, end: 20040309

REACTIONS (7)
  - AMNESIA [None]
  - DISTURBANCE IN ATTENTION [None]
  - DRUG WITHDRAWAL SYNDROME [None]
  - INFLUENZA LIKE ILLNESS [None]
  - MIGRAINE [None]
  - NERVOUS SYSTEM DISORDER [None]
  - SUICIDAL IDEATION [None]
